FAERS Safety Report 23857701 (Version 2)
Quarter: 2024Q2

REPORT INFORMATION
  Report Type: Spontaneous
  Country: US (occurrence: US)
  Receive Date: 20240515
  Receipt Date: 20240531
  Transmission Date: 20240716
  Serious: Yes (Other)
  Sender: FDA-Public Use
  Company Number: US-Kiniksa Pharmaceuticals Ltd.-2023KPU000862

PATIENT
  Age: 71 Year
  Sex: Female

DRUGS (3)
  1. ARCALYST [Suspect]
     Active Substance: RILONACEPT
     Indication: Pericarditis
     Route: 058
     Dates: start: 20230904
  2. ARCALYST [Suspect]
     Active Substance: RILONACEPT
     Route: 058
     Dates: start: 20230911
  3. Myomin [Concomitant]
     Indication: Supplementation therapy

REACTIONS (14)
  - Neoplasm [Unknown]
  - Lymphadenectomy [Unknown]
  - Micturition urgency [Not Recovered/Not Resolved]
  - Cystitis [Not Recovered/Not Resolved]
  - Hormone level abnormal [Unknown]
  - Fatigue [Recovering/Resolving]
  - Injection site rash [Recovered/Resolved]
  - Injection site erythema [Recovering/Resolving]
  - Injection site urticaria [Recovering/Resolving]
  - Lymphadenopathy [Unknown]
  - Angiotensin II receptor type 1 antibody positive [Unknown]
  - Fluid retention [Unknown]
  - Infection [Unknown]
  - Inflammation [Unknown]

NARRATIVE: CASE EVENT DATE: 20230901
